FAERS Safety Report 19684549 (Version 1)
Quarter: 2021Q3

REPORT INFORMATION
  Report Type: Spontaneous
  Country: US (occurrence: US)
  Receive Date: 20210811
  Receipt Date: 20210811
  Transmission Date: 20211014
  Serious: Yes (Other)
  Sender: FDA-Public Use
  Company Number: US-SUNOVION-2021SUN002980

PATIENT
  Age: 37 Year
  Sex: Female
  Weight: 72.56 kg

DRUGS (6)
  1. MELATONIN [Suspect]
     Active Substance: MELATONIN
     Indication: SLEEP DISORDER
     Dosage: 10 MG, AT NIGHT AS NECESSARY
  2. MAGNESIUM [Concomitant]
     Active Substance: MAGNESIUM
     Indication: ANXIETY
     Dosage: 105 MG, QD
  3. LUNESTA [Suspect]
     Active Substance: ESZOPICLONE
     Indication: SLEEP DISORDER
     Dosage: 3 MG 3 TABLETS AT NIGHT
     Route: 048
     Dates: end: 20210721
  4. LUNESTA [Suspect]
     Active Substance: ESZOPICLONE
     Dosage: 3 MG AT NIGHT
     Route: 048
  5. LUNESTA [Suspect]
     Active Substance: ESZOPICLONE
     Dosage: 3 MG 2 TABLETS AT NIGHT
     Route: 048
  6. GABA [Concomitant]
     Active Substance: HOMEOPATHICS
     Indication: ANXIETY
     Dosage: 500 MG, QD IN AM

REACTIONS (9)
  - Drug tolerance [Unknown]
  - Anxiety [Not Recovered/Not Resolved]
  - Thyroidectomy [Unknown]
  - Insomnia [Not Recovered/Not Resolved]
  - Restlessness [Not Recovered/Not Resolved]
  - Feeling hot [Not Recovered/Not Resolved]
  - Bone pain [Not Recovered/Not Resolved]
  - Tremor [Not Recovered/Not Resolved]
  - Overdose [Unknown]

NARRATIVE: CASE EVENT DATE: 20210723
